FAERS Safety Report 21375805 (Version 3)
Quarter: 2022Q4

REPORT INFORMATION
  Report Type: Spontaneous
  Country: CA (occurrence: CA)
  Receive Date: 20220926
  Receipt Date: 20221109
  Transmission Date: 20230112
  Serious: Yes (Death, Congenital Anomaly, Other)
  Sender: FDA-Public Use
  Company Number: CA-NOVARTISPH-NVSC2022CA216598

PATIENT

DRUGS (6)
  1. VALSARTAN [Suspect]
     Active Substance: VALSARTAN
     Indication: Foetal exposure during pregnancy
     Dosage: MATERNAL DOSE: UNKNOWN
     Route: 064
  2. TELMISARTAN [Suspect]
     Active Substance: TELMISARTAN
     Indication: Foetal exposure during pregnancy
     Dosage: MATERNAL DOSE: UNKNOWN
     Route: 064
  3. LOSARTAN [Suspect]
     Active Substance: LOSARTAN
     Indication: Foetal exposure during pregnancy
     Dosage: MATERNAL DOSE: UNKNOWN
     Route: 064
  4. PERINDOPRIL [Suspect]
     Active Substance: PERINDOPRIL
     Indication: Foetal exposure during pregnancy
     Dosage: MATERNAL DOSE: UNKNOWN
     Route: 064
  5. LASIX [Concomitant]
     Active Substance: FUROSEMIDE
     Indication: Foetal exposure during pregnancy
     Dosage: MATERNAL DOSE: UNKNOWN
     Route: 064
  6. SPIRONOLACTONE [Concomitant]
     Active Substance: SPIRONOLACTONE
     Indication: Foetal exposure during pregnancy
     Dosage: MATERNAL DOSE: UNKNOWN
     Route: 064

REACTIONS (14)
  - Bicuspid aortic valve [Fatal]
  - Foetal malformation [Fatal]
  - Hypocalvaria [Fatal]
  - Limb deformity [Fatal]
  - Potter^s syndrome [Fatal]
  - Respiratory failure [Fatal]
  - Renal vein thrombosis [Fatal]
  - Angiotensin converting enzyme inhibitor foetopathy [Fatal]
  - Gingival disorder [Fatal]
  - Polyuria [Fatal]
  - Renal aplasia [Fatal]
  - Anuria [Fatal]
  - Hypotension [Fatal]
  - Foetal exposure during pregnancy [Fatal]
